FAERS Safety Report 14814960 (Version 2)
Quarter: 2018Q2

REPORT INFORMATION
  Report Type: Other
  Country: FR (occurrence: FR)
  Receive Date: 20180426
  Receipt Date: 20180528
  Transmission Date: 20180711
  Serious: Yes (Death)
  Sender: FDA-Public Use
  Company Number: FR-ACTELION-A-CH2018-171075

PATIENT
  Age: 59 Year
  Sex: Female

DRUGS (5)
  1. EPOPROSTENOL SODIUM. [Suspect]
     Active Substance: EPOPROSTENOL SODIUM
     Indication: PULMONARY ARTERIAL HYPERTENSION
     Dosage: 35 NG/KG, PER MIN
     Route: 042
  2. FLOLAN [Suspect]
     Active Substance: EPOPROSTENOL SODIUM
     Indication: PULMONARY ARTERIAL HYPERTENSION
     Dosage: 35 NG/KG, PER MIN
     Route: 065
  3. AMBRISENTAN [Concomitant]
     Active Substance: AMBRISENTAN
  4. TADALAFIL [Concomitant]
     Active Substance: TADALAFIL
  5. ILOPROST. [Concomitant]
     Active Substance: ILOPROST
     Route: 055

REACTIONS (7)
  - Acute respiratory failure [Fatal]
  - Impaired quality of life [Unknown]
  - Headache [Unknown]
  - Right ventricular failure [Fatal]
  - Diarrhoea [Unknown]
  - Dyspnoea [Unknown]
  - Pain in jaw [Unknown]
